FAERS Safety Report 22077325 (Version 1)
Quarter: 2023Q1

REPORT INFORMATION
  Report Type: Spontaneous
  Country: US (occurrence: US)
  Receive Date: 20230309
  Receipt Date: 20230309
  Transmission Date: 20230418
  Serious: Yes (Other)
  Sender: FDA-Public Use
  Company Number: US-drreddys-SPO/USA/23/0161856

PATIENT
  Age: 25 Year
  Sex: Female

DRUGS (2)
  1. ACCUTANE [Suspect]
     Active Substance: ISOTRETINOIN
     Indication: Product used for unknown indication
     Dosage: RMA ISSUE DATES: 21 OCTOBER 2022 09:39:18 AM, 21 NOVEMBER 2022 09:28:19 AM, 20 DECEMBER 2022 09:17:0
  2. ACCUTANE [Suspect]
     Active Substance: ISOTRETINOIN
     Dosage: RMA ISSUE DATE: 23 JANUARY 2023 09:21:19 AM

REACTIONS (2)
  - Anxiety [Unknown]
  - Depression [Unknown]
